FAERS Safety Report 8137636-0 (Version None)
Quarter: 2012Q1

REPORT INFORMATION
  Report Type: 
  Country: None (occurrence: None)
  Receive Date: 20120215
  Receipt Date: 20120213
  Transmission Date: 20120608
  Serious: No
  Sender: FDA-Public Use
  Company Number: US-PFIZER INC-2011108333

PATIENT
  Sex: Female
  Weight: 112 kg

DRUGS (3)
  1. CYTOMEL [Interacting]
     Indication: THYROID DISORDER
     Dosage: 5 UG, 2X/DAY
     Route: 048
     Dates: start: 20110401, end: 20110516
  2. PRISTIQ [Suspect]
     Indication: DEPRESSION
     Dosage: 100 MG, DAILY
     Route: 048
     Dates: start: 20100101
  3. SYNTHROID [Concomitant]
     Indication: THYROID DISORDER
     Dosage: UNK
     Route: 048

REACTIONS (3)
  - MUSCULAR WEAKNESS [None]
  - CONFUSIONAL STATE [None]
  - DRUG INTERACTION [None]
